FAERS Safety Report 5923755-3 (Version None)
Quarter: 2008Q4

REPORT INFORMATION
  Report Type: 
  Country: None (occurrence: None)
  Receive Date: 20081020
  Receipt Date: 20081010
  Transmission Date: 20090506
  Serious: Yes (Hospitalization)
  Sender: FDA-Public Use
  Company Number: GB-ASTRAZENECA-2004GB02535

PATIENT
  Age: 41 Year
  Sex: Male
  Weight: 55 kg

DRUGS (6)
  1. OMEPRAZOLE [Interacting]
     Indication: FUNGAL INFECTION
     Route: 048
     Dates: start: 20040815
  2. OMEPRAZOLE [Interacting]
     Indication: DYSPEPSIA
     Route: 048
     Dates: start: 20040815
  3. VORICONAZOLE [Interacting]
     Indication: GASTROINTESTINAL CANDIDIASIS
     Route: 048
     Dates: start: 20040820, end: 20040915
  4. ITRACONAZOLE [Suspect]
     Route: 065
  5. DOMPERIDONE [Concomitant]
     Indication: NAUSEA
     Route: 065
     Dates: start: 20040815
  6. AMPHOTERICIN B [Concomitant]

REACTIONS (8)
  - COLLAPSE OF LUNG [None]
  - DRUG INTERACTION [None]
  - DRUG INTOLERANCE [None]
  - DRUG LEVEL INCREASED [None]
  - LEFT VENTRICULAR FAILURE [None]
  - NEUTROPENIA [None]
  - PERICARDIAL EFFUSION [None]
  - SUPRAVENTRICULAR TACHYCARDIA [None]
